FAERS Safety Report 4915770-3 (Version None)
Quarter: 2006Q1

REPORT INFORMATION
  Report Type: 
  Country: None (occurrence: None)
  Receive Date: 20060113
  Receipt Date: 20050930
  Transmission Date: 20060701
  Serious: No
  Sender: FDA-Public Use
  Company Number: 2005SP003315

PATIENT
  Age: 55 Year
  Sex: Female
  Weight: 65.7716 kg

DRUGS (8)
  1. LUNESTA [Suspect]
     Dosage: 2 MG;ORAL ; 2 MG;ORAL ; 2 MG;BIW;ORAL
     Route: 048
     Dates: start: 20050901, end: 20050922
  2. LUNESTA [Suspect]
     Dosage: 2 MG;ORAL ; 2 MG;ORAL ; 2 MG;BIW;ORAL
     Route: 048
     Dates: start: 20050925, end: 20050927
  3. LUNESTA [Suspect]
     Dosage: 2 MG;ORAL ; 2 MG;ORAL ; 2 MG;BIW;ORAL
     Route: 048
     Dates: start: 20050101
  4. GLYBURIDE [Concomitant]
  5. GLUCOPHAGE [Concomitant]
  6. CELEXA [Concomitant]
  7. ASPIRIN [Concomitant]
  8. ASPIRIN [Concomitant]

REACTIONS (2)
  - BREATH ODOUR [None]
  - DYSPNOEA [None]
